FAERS Safety Report 4340493-1 (Version None)
Quarter: 2004Q2

REPORT INFORMATION
  Report Type: 
  Country: None (occurrence: None)
  Receive Date: 20040414
  Receipt Date: 20040330
  Transmission Date: 20050107
  Serious: Yes (Other)
  Sender: FDA-Public Use
  Company Number: US-JNJFOC-20040400166

PATIENT
  Sex: Female

DRUGS (2)
  1. ULTRACET [Suspect]
     Dosage: ORAL
     Route: 048
  2. DITROPAN XL [Suspect]

REACTIONS (1)
  - TRANSIENT ISCHAEMIC ATTACK [None]
